FAERS Safety Report 15229740 (Version 1)
Quarter: 2018Q3

REPORT INFORMATION
  Report Type: Spontaneous
  Country: US (occurrence: US)
  Receive Date: 20180802
  Receipt Date: 20180802
  Transmission Date: 20181010
  Serious: Yes (Other)
  Sender: FDA-Public Use
  Company Number: US-ACCORD-061793

PATIENT
  Age: 53 Year
  Sex: Female
  Weight: 127.28 kg

DRUGS (28)
  1. PARAPLATIN [Suspect]
     Active Substance: CARBOPLATIN
     Indication: BREAST CANCER FEMALE
     Dates: start: 20151106
  2. HERCEPTIN [Suspect]
     Active Substance: TRASTUZUMAB
     Indication: BREAST CANCER FEMALE
     Dates: start: 20151106
  3. SIMVASTATIN. [Concomitant]
     Active Substance: SIMVASTATIN
     Dates: start: 20070201
  4. DICYCLOVERINE [Concomitant]
     Active Substance: DICYCLOMINE HYDROCHLORIDE
     Dosage: 1 AS DIRECTED
     Route: 048
     Dates: start: 20151106
  5. BYDUREON [Concomitant]
     Active Substance: EXENATIDE
     Dates: start: 20151106
  6. AUGMENTIN [Concomitant]
     Active Substance: AMOXICILLIN\CLAVULANATE POTASSIUM
     Dosage: STRENGTH: 125 MG TO 875 MG?GIVEN TWICE DAILY OR EVERY 12 HOURS
     Route: 048
     Dates: start: 20160315
  7. RADIAPLEXRX [Concomitant]
     Dates: start: 20160426
  8. SILVADENE [Concomitant]
     Active Substance: SILVER SULFADIAZINE
     Dosage: STRENGTH: 1 % CREAM?TAKE ONE UNIT AS DIRECTED
     Route: 061
     Dates: start: 20160620
  9. ATROPINE SULFATE/DIPHENOXYLATE HYDROCHLORIDE [Concomitant]
     Indication: DIARRHOEA
     Dosage: 0.25 MG TO 2.5 MG TABLET TAKE 1?2 TABLETS BY MOUTH 4 TIMES DAILY AS NEEDED
     Dates: start: 20151106
  10. COMPAZINE [Concomitant]
     Active Substance: PROCHLORPERAZINE MALEATE
     Indication: NAUSEA
     Dosage: STRENGTH: 10 MG
     Route: 048
     Dates: start: 20151106
  11. CLARITIN [Concomitant]
     Active Substance: LORATADINE
     Dosage: STRENGTH: 10 MG
     Route: 048
     Dates: start: 20151106
  12. GABAPENTIN. [Concomitant]
     Active Substance: GABAPENTIN
     Dosage: STRENGTH: 300 MG?AT BEDTIME FOR 3 NIGHTS THEN INCREASE TO 300 MG IN AM AND PM FOR 3 DAYS
     Dates: start: 20160219
  13. PERTUZUMAB. [Concomitant]
     Active Substance: PERTUZUMAB
     Indication: BREAST CANCER FEMALE
     Dates: start: 20151106
  14. PARACETAMOL [Concomitant]
     Active Substance: ACETAMINOPHEN
     Dosage: 2 TABLETS
     Route: 048
     Dates: start: 20151106
  15. CEFDINIR. [Concomitant]
     Active Substance: CEFDINIR
     Dosage: STRENGTH: 300 MG?AS DIRECTED
     Route: 048
     Dates: start: 20151111
  16. DOCETAXEL ACCORD [Suspect]
     Active Substance: DOCETAXEL
     Indication: BREAST CANCER FEMALE
     Dosage: DOSE: 165?186 MG/KG?165 MG ON 30?NOV?2015
     Route: 042
     Dates: start: 20151106, end: 20160219
  17. PEGFILGRASTIM [Concomitant]
     Active Substance: PEGFILGRASTIM
     Dates: start: 20151106
  18. PYRIDIUM [Concomitant]
     Active Substance: PHENAZOPYRIDINE
     Dosage: STRENGTH: 200 MG?TID
     Route: 048
     Dates: start: 20150228
  19. DEXAMETHASONE. [Concomitant]
     Active Substance: DEXAMETHASONE
     Dates: start: 20151106
  20. PALONOSETRON. [Concomitant]
     Active Substance: PALONOSETRON HYDROCHLORIDE
     Indication: BREAST CANCER FEMALE
     Dates: start: 20151106
  21. DIPHENHYDRAMINE. [Concomitant]
     Active Substance: DIPHENHYDRAMINE
     Dosage: 1 CAPSULE
     Dates: start: 20151106
  22. OMEPRAZOLE. [Concomitant]
     Active Substance: OMEPRAZOLE
     Dosage: STRENGTH: 20 MG
     Dates: start: 20151106
  23. LEVAQUIN [Concomitant]
     Active Substance: LEVOFLOXACIN
     Dosage: STRENGTH: 500 MG?TAKE 1 PO DAILY
     Route: 048
     Dates: start: 20151207
  24. LIDOCAINE. [Concomitant]
     Active Substance: LIDOCAINE
     Dosage: STRENGTH: 5 %?TAKE ONE APPLICATION AS DIRECTED?APPLY TO AFFECTED AREA
     Route: 061
     Dates: start: 20160620
  25. PROMETHAZINE [Concomitant]
     Active Substance: PROMETHAZINE\PROMETHAZINE HYDROCHLORIDE
     Indication: NAUSEA
     Dosage: STRENGTH: 25 MG
     Route: 054
     Dates: start: 20151106
  26. QUINAPRIL. [Concomitant]
     Active Substance: QUINAPRIL
     Dates: start: 20070101
  27. ZOFRAN [Concomitant]
     Active Substance: ONDANSETRON HYDROCHLORIDE
     Indication: NAUSEA
     Dosage: STRENGTH: 8 MG
     Dates: start: 20151106
  28. FLUCONAZOLE. [Concomitant]
     Active Substance: FLUCONAZOLE
     Indication: INFECTION
     Dosage: STRENGTH: 100 MG?2 TABLETS ON D1 THEN 1 TAB QD
     Route: 048
     Dates: start: 20151228

REACTIONS (3)
  - Alopecia [Not Recovered/Not Resolved]
  - Hair texture abnormal [Unknown]
  - Hair colour changes [Unknown]

NARRATIVE: CASE EVENT DATE: 20160819
